FAERS Safety Report 8252627-7 (Version None)
Quarter: 2012Q2

REPORT INFORMATION
  Report Type: 
  Country: None (occurrence: None)
  Receive Date: 20120402
  Receipt Date: 20110729
  Transmission Date: 20120825
  Serious: No
  Sender: FDA-Public Use
  Company Number: US-ABBOTT-11P-163-0843112-00

PATIENT
  Sex: Male
  Weight: 93.07 kg

DRUGS (14)
  1. GUAFESIN PILL [Concomitant]
     Indication: RESPIRATORY TRACT CONGESTION
  2. OMEPRAZOLE [Concomitant]
     Indication: GASTRIC DISORDER
  3. FLUTICASONE FUROATE [Concomitant]
     Indication: NASAL CONGESTION
     Route: 045
  4. TYLENOL [Concomitant]
     Indication: PAIN
  5. CYMBALTA [Concomitant]
     Indication: DEPRESSION
  6. NAMENDA [Concomitant]
     Indication: NEURODEGENERATIVE DISORDER
  7. NAPROXEN [Concomitant]
     Indication: ARTHRITIS
  8. ASPIRIN [Concomitant]
     Indication: CARDIAC DISORDER
  9. BIOTIN [Concomitant]
     Indication: VITAMIN SUPPLEMENTATION
  10. FISH OIL [Concomitant]
     Indication: MINERAL SUPPLEMENTATION
  11. DIOVAN [Concomitant]
     Indication: BLOOD PRESSURE
  12. ANDROGEL [Suspect]
     Indication: BLOOD TESTOSTERONE DECREASED
     Route: 061
     Dates: start: 20010101, end: 20110601
  13. ANDROGEL [Suspect]
     Route: 061
     Dates: start: 20110701
  14. CALCIUM WITH D [Concomitant]
     Indication: MINERAL SUPPLEMENTATION

REACTIONS (5)
  - FATIGUE [None]
  - HEADACHE [None]
  - DEPRESSION [None]
  - LIBIDO INCREASED [None]
  - THYROID FUNCTION TEST ABNORMAL [None]
